FAERS Safety Report 5849101-1 (Version None)
Quarter: 2008Q3

REPORT INFORMATION
  Report Type: 
  Country: None (occurrence: None)
  Receive Date: 20080815
  Receipt Date: 20080801
  Transmission Date: 20090109
  Serious: Yes (Hospitalization)
  Sender: FDA-Public Use
  Company Number: FR-1166915

PATIENT
  Age: 4 Day
  Sex: 0

DRUGS (2)
  1. ATROPINE SULFATE (ATROPINE SULFATE) 1 % SOLUTION EYE DROPS, SOLUTION [Suspect]
     Dosage: OPHTHALMIC
     Route: 047
  2. HOMATROPINE (HOMATROPINE) 1% SOLUTION EYE DROPS, SOLUTION [Suspect]
     Dosage: OPHTHALMIC
     Route: 047

REACTIONS (2)
  - MEDICATION ERROR [None]
  - WRONG DRUG ADMINISTERED [None]
